FAERS Safety Report 5466968-X (Version None)
Quarter: 2007Q3

REPORT INFORMATION
  Report Type: 
  Country: None (occurrence: None)
  Receive Date: 20070921
  Receipt Date: 20070921
  Transmission Date: 20080115
  Serious: Yes (Hospitalization, Other)
  Sender: FDA-Public Use
  Company Number: None

PATIENT
  Sex: Female
  Weight: 63.5036 kg

DRUGS (1)
  1. CRESTOR [Suspect]
     Indication: BLOOD CHOLESTEROL INCREASED
     Dosage: 1 TABLET ONCE DAILY PO
     Route: 048
     Dates: start: 20050826, end: 20050901

REACTIONS (4)
  - ABDOMINAL PAIN UPPER [None]
  - KETOACIDOSIS [None]
  - PANCREATITIS [None]
  - TYPE 1 DIABETES MELLITUS [None]
